FAERS Safety Report 13864680 (Version 1)
Quarter: 2017Q3

REPORT INFORMATION
  Report Type: Spontaneous
  Country: US (occurrence: US)
  Receive Date: 20170813
  Receipt Date: 20170813
  Transmission Date: 20171127
  Serious: Yes (Other)
  Sender: FDA-Public Use
  Company Number: None

PATIENT
  Age: 43 Year
  Sex: Female
  Weight: 69.3 kg

DRUGS (1)
  1. LEVOFLOXACIN. [Suspect]
     Active Substance: LEVOFLOXACIN
     Indication: HELICOBACTER INFECTION
     Dosage: ?          QUANTITY:56 CAPSULE(S);?
     Route: 048
     Dates: start: 20170727, end: 20170801

REACTIONS (5)
  - Pain [None]
  - Ligament pain [None]
  - Insomnia [None]
  - Alopecia [None]
  - Swelling [None]
